FAERS Safety Report 23019725 (Version 1)
Quarter: 2023Q4

REPORT INFORMATION
  Report Type: Spontaneous
  Country: US (occurrence: US)
  Receive Date: 20231003
  Receipt Date: 20231003
  Transmission Date: 20240110
  Serious: No
  Sender: FDA-Public Use
  Company Number: US-CASPERPHARMA-US-2023RISSPO00145

PATIENT
  Age: 81 Year
  Sex: Male

DRUGS (3)
  1. ALLOPURINOL [Suspect]
     Active Substance: ALLOPURINOL
     Indication: Product used for unknown indication
     Route: 065
  2. JAKAFI [Suspect]
     Active Substance: RUXOLITINIB
     Indication: Myeloproliferative neoplasm
     Route: 048
     Dates: start: 202305
  3. HYDROXYUREA [Suspect]
     Active Substance: HYDROXYUREA
     Indication: Product used for unknown indication
     Route: 065

REACTIONS (1)
  - Candida infection [Unknown]

NARRATIVE: CASE EVENT DATE: 20230501
